FAERS Safety Report 6156330-9 (Version None)
Quarter: 2009Q2

REPORT INFORMATION
  Report Type: 
  Country: None (occurrence: None)
  Receive Date: 20090415
  Receipt Date: 20090413
  Transmission Date: 20091009
  Serious: Yes (Hospitalization)
  Sender: FDA-Public Use
  Company Number: US-B.I. PHARMACEUTICALS,INC./RIDGEFIELD-2009-BP-00364BP

PATIENT
  Sex: Female

DRUGS (16)
  1. MIRAPEX [Suspect]
     Indication: RESTLESS LEGS SYNDROME
     Route: 048
     Dates: start: 20070503, end: 20081024
  2. WARFARIN SODIUM [Concomitant]
     Dosage: 7.5MG
     Dates: start: 20010401
  3. DIGOXIN [Concomitant]
     Dosage: 250MCG
     Dates: start: 20010401
  4. LIPITOR [Concomitant]
     Dosage: 20MG
     Dates: start: 20010401
  5. KEPPRA [Concomitant]
     Dates: start: 20010401
  6. DARVOCET [Concomitant]
  7. CLORAZEPATE DIPOTASSIUM [Concomitant]
     Indication: BONE DISORDER
  8. NITROGLYCERIN [Concomitant]
  9. ZETIA [Concomitant]
     Indication: TACHYCARDIA
  10. FOLIC ACID [Concomitant]
     Dosage: 1MG
     Dates: start: 20010401
  11. GABAPENTIN [Concomitant]
     Dosage: 600MG
     Dates: start: 20010401
  12. AMBIEN [Concomitant]
     Dates: start: 20010401
  13. LASIX [Concomitant]
     Dosage: 40MG
     Dates: start: 20010401
  14. KLOR-CON [Concomitant]
     Dosage: 40MG
     Dates: start: 20010401
  15. TRICOR [Concomitant]
     Dosage: 145MG
     Dates: start: 20010401
  16. ASPIRIN [Concomitant]
     Dosage: 85MG
     Dates: start: 20010401

REACTIONS (6)
  - HYPOTENSION [None]
  - OVERDOSE [None]
  - PAIN [None]
  - PATHOLOGICAL GAMBLING [None]
  - SUICIDAL IDEATION [None]
  - SUICIDE ATTEMPT [None]
